FAERS Safety Report 13113923 (Version 4)
Quarter: 2017Q1

REPORT INFORMATION
  Report Type: Report from Study
  Country: AU (occurrence: AU)
  Receive Date: 20170113
  Receipt Date: 20170120
  Transmission Date: 20170428
  Serious: No
  Sender: FDA-Public Use
  Company Number: AU-JNJFOC-20170108834

PATIENT
  Sex: Male

DRUGS (1)
  1. STELARA [Suspect]
     Active Substance: USTEKINUMAB
     Indication: PSORIASIS
     Route: 058
     Dates: start: 20161118

REACTIONS (4)
  - Psoriasis [Unknown]
  - Eye swelling [Unknown]
  - Irritability [Unknown]
  - Anxiety [Unknown]
